FAERS Safety Report 12687118 (Version 2)
Quarter: 2016Q3

REPORT INFORMATION
  Report Type: Spontaneous
  Country: BR (occurrence: BR)
  Receive Date: 20160825
  Receipt Date: 20160904
  Transmission Date: 20161109
  Serious: Yes (Other)
  Sender: FDA-Public Use
  Company Number: BR-BEH-2016072964

PATIENT
  Age: 31 Year
  Sex: Female
  Weight: 51 kg

DRUGS (27)
  1. WARFARIN [Concomitant]
     Active Substance: WARFARIN
     Dosage: 5 MG, ONCE A DAY
     Route: 048
  2. AMOXICILLIN/CLAVULANIC ACID [Concomitant]
     Active Substance: AMOXICILLIN\CLAVULANIC ACID
     Dosage: 500 MG + 125 MG, EVERY 8 HOURS
     Route: 048
  3. PAPAIN [Concomitant]
     Active Substance: PAPAIN
     Dosage: 10% GEL; ONCE A DAY DURING BANDAGE CHANGE
     Route: 061
  4. TRAMADOL. [Concomitant]
     Active Substance: TRAMADOL
     Dosage: 50 MG, TID
     Route: 048
  5. ENOXAPARIN [Concomitant]
     Active Substance: ENOXAPARIN
     Dosage: 60 MG, EVERY 12 HOURS
     Route: 058
  6. PREDNISONE. [Concomitant]
     Active Substance: PREDNISONE
     Dosage: 20 MG, QD
     Route: 048
  7. SANDOGLOBULINA [Suspect]
     Active Substance: HUMAN IMMUNOGLOBULIN G
     Dosage: 30 G, UNK
     Route: 042
     Dates: start: 20160612, end: 20160612
  8. VITAMIN D3 [Concomitant]
     Active Substance: CHOLECALCIFEROL
     Dosage: 1000 IU/DROP, 1 DROP ONCE A DAY, OIL SOLUTION
     Route: 048
  9. FLUOXETINE [Concomitant]
     Active Substance: FLUOXETINE HYDROCHLORIDE
     Dosage: 20 MG, ONCE A DAY
     Route: 048
  10. METHYLPREDNISOLONE. [Concomitant]
     Active Substance: METHYLPREDNISOLONE
     Dosage: 125 MG / 2ML, 30 MG ONCE A DAY
     Route: 042
  11. CEFTRIAXONE. [Concomitant]
     Active Substance: CEFTRIAXONE
     Dosage: 1 G, 1 GRAM EVERY 12 HOURS
     Route: 042
  12. OXACILLIN [Concomitant]
     Active Substance: OXACILLIN SODIUM
     Dosage: 500 MG, 1 GRAM EVERY 4 HOURS
     Route: 042
  13. SUNSCREEN [Concomitant]
     Active Substance: HOMOSALATE\OCTINOXATE\OCTISALATE\OXYBENZONE\TITANIUM DIOXIDE
     Dosage: CREAM; 3 TIMES A DAY UNTIL NEXT APPOINTMENT
     Route: 061
  14. DIPYRONE [Concomitant]
     Active Substance: DIPYRONE
     Dosage: 500 MG, QID
     Route: 048
  15. ATORVASTATIN [Concomitant]
     Active Substance: ATORVASTATIN
     Dosage: 10 MG, 2 PILLS ONCE A DAY
     Route: 048
  16. TRAMADOL. [Concomitant]
     Active Substance: TRAMADOL
     Dosage: 50 MG, QID
     Route: 042
  17. SANDOGLOBULINA [Suspect]
     Active Substance: HUMAN IMMUNOGLOBULIN G
     Indication: SYSTEMIC LUPUS ERYTHEMATOSUS
     Dosage: 42 G, TOT
     Route: 042
     Dates: start: 20160610, end: 20160610
  18. DIPYRONE [Concomitant]
     Active Substance: DIPYRONE
     Dosage: 1 G, QID
     Route: 042
  19. CYCLOPHOSPHAMIDE. [Concomitant]
     Active Substance: CYCLOPHOSPHAMIDE
     Dosage: UNK
     Route: 042
     Dates: end: 201606
  20. HYDROXYCHLOROQUINE SULFATE. [Concomitant]
     Active Substance: HYDROXYCHLOROQUINE SULFATE
     Dosage: 400 MG, ONCE A DAY, FROM MONDAYS TO FRIDAYS
     Route: 048
  21. MORPHINE [Concomitant]
     Active Substance: MORPHINE
     Dosage: 3 MG, UNK
     Route: 042
  22. METHYLPREDNISOLONE. [Concomitant]
     Active Substance: METHYLPREDNISOLONE
     Dosage: UNK
     Route: 042
     Dates: end: 201606
  23. PREDNISONE. [Concomitant]
     Active Substance: PREDNISONE
     Dosage: 5 MG, BID
     Route: 048
  24. MORPHINE [Concomitant]
     Active Substance: MORPHINE
     Dosage: 10 MG, QID
     Route: 048
  25. SANDOGLOBULINA [Suspect]
     Active Substance: HUMAN IMMUNOGLOBULIN G
     Dosage: 30 G, TOT
     Route: 042
     Dates: start: 20160611, end: 20160611
  26. ENALAPRIL [Concomitant]
     Active Substance: ENALAPRIL
     Dosage: 5 MG, 2 PILLS EVERY 12 HOURS
     Route: 048
  27. OMEPRAZOLE. [Concomitant]
     Active Substance: OMEPRAZOLE
     Dosage: 20 MG, ONCE A DAY UNTIL NEXT APPOINTMENT
     Route: 048

REACTIONS (7)
  - Acute pulmonary oedema [Recovered/Resolved]
  - Oxygen saturation decreased [Recovered/Resolved]
  - Heart rate increased [Recovered/Resolved]
  - Tachypnoea [Recovered/Resolved]
  - Cardiac murmur [Recovered/Resolved]
  - Rales [Recovered/Resolved]
  - Blood pressure increased [Recovered/Resolved]

NARRATIVE: CASE EVENT DATE: 20160612
